FAERS Safety Report 7511435-2 (Version None)
Quarter: 2011Q2

REPORT INFORMATION
  Report Type: 
  Country: None (occurrence: None)
  Receive Date: 20110531
  Receipt Date: 20110524
  Transmission Date: 20111010
  Serious: Yes (Hospitalization)
  Sender: FDA-Public Use
  Company Number: FR-US-EMD SERONO, INC.-7061156

PATIENT
  Sex: Female

DRUGS (3)
  1. LEVOTHYROXINE SODIUM [Concomitant]
     Indication: HYPOTHYROIDISM
  2. SAIZEN [Suspect]
     Indication: GROWTH HORMONE DEFICIENCY
  3. SAIZEN [Suspect]
     Indication: HYPOTHYROIDISM
     Route: 058
     Dates: start: 20071101, end: 20110401

REACTIONS (1)
  - THYROID CANCER [None]
